FAERS Safety Report 20870431 (Version 2)
Quarter: 2022Q2

REPORT INFORMATION
  Report Type: Spontaneous
  Country: US (occurrence: US)
  Receive Date: 20220525
  Receipt Date: 20220620
  Transmission Date: 20220721
  Serious: No
  Sender: FDA-Public Use
  Company Number: US-BRISTOL-MYERS SQUIBB COMPANY-2022-029939

PATIENT
  Age: 65 Year
  Sex: Female

DRUGS (2)
  1. POMALYST [Suspect]
     Active Substance: POMALIDOMIDE
     Indication: Plasma cell myeloma
     Dosage: DOSE: 3 MG   FREQUENCY: 1 CAPSULE BY MOUTH ONCE DAILY DAYS 1 THROUGH 21 OF EACH 28 DAY CYCLE
     Route: 048
     Dates: start: 20220428
  2. POMALYST [Suspect]
     Active Substance: POMALIDOMIDE
     Route: 048

REACTIONS (3)
  - Chills [Unknown]
  - Infection [Unknown]
  - Peripheral coldness [Unknown]
